FAERS Safety Report 9637893 (Version 1)
Quarter: 2013Q4

REPORT INFORMATION
  Report Type: Spontaneous
  Country: US (occurrence: US)
  Receive Date: 20131022
  Receipt Date: 20131022
  Transmission Date: 20140711
  Serious: No
  Sender: FDA-Public Use
  Company Number: US-B.I. PHARMACEUTICALS,INC./RIDGEFIELD-2013-BI-30674BP

PATIENT
  Age: 66 Year
  Sex: Female

DRUGS (6)
  1. GILOTRIF [Suspect]
     Indication: NON-SMALL CELL LUNG CANCER
     Dosage: 40 MG
     Route: 048
     Dates: start: 20130919
  2. IMODIUM [Concomitant]
     Dates: start: 20130925
  3. ATIVAN [Concomitant]
  4. TESSALON PERLES [Concomitant]
     Indication: COUGH
  5. MULTIVITAMIN [Concomitant]
  6. FOLIC ACID [Concomitant]

REACTIONS (4)
  - Diarrhoea [Unknown]
  - Stomatitis [Unknown]
  - Rash [Unknown]
  - Local swelling [Unknown]
